FAERS Safety Report 22124153 (Version 1)
Quarter: 2023Q1

REPORT INFORMATION
  Report Type: Spontaneous
  Country: JP (occurrence: None)
  Receive Date: 20230322
  Receipt Date: 20230322
  Transmission Date: 20230418
  Serious: Yes (Other)
  Sender: FDA-Public Use
  Company Number: 2023A064675

PATIENT
  Sex: Male

DRUGS (1)
  1. EVUSHELD [Suspect]
     Active Substance: CILGAVIMAB\TIXAGEVIMAB
     Dosage: DOSE UNKNOWN, 300 MG (TIXAGEVIMAB 150 MG/ CILGAVIMAB 150 MG)
     Route: 030
     Dates: start: 20230223

REACTIONS (4)
  - Swelling face [Unknown]
  - Ocular hyperaemia [Not Recovered/Not Resolved]
  - Body temperature fluctuation [Unknown]
  - Rash [Recovered/Resolved]

NARRATIVE: CASE EVENT DATE: 20230201
